FAERS Safety Report 5515383-9 (Version None)
Quarter: 2007Q4

REPORT INFORMATION
  Report Type: 
  Country: None (occurrence: None)
  Receive Date: 20071109
  Receipt Date: 20071026
  Transmission Date: 20080405
  Serious: Yes (Other)
  Sender: FDA-Public Use
  Company Number: 163366ISR

PATIENT
  Age: 78 Year
  Sex: Male

DRUGS (1)
  1. SIMVASTATIN [Suspect]
     Indication: MYOCARDIAL ISCHAEMIA
     Dosage: (40 MG) ORAL
     Route: 048
     Dates: start: 20070501, end: 20071001

REACTIONS (1)
  - ANGINA PECTORIS [None]
